FAERS Safety Report 23748413 (Version 3)
Quarter: 2024Q2

REPORT INFORMATION
  Report Type: Spontaneous
  Country: BR (occurrence: BR)
  Receive Date: 20240416
  Receipt Date: 20240422
  Transmission Date: 20240715
  Serious: Yes (Other)
  Sender: FDA-Public Use
  Company Number: BR-MYLANLABS-2024M1033117

PATIENT

DRUGS (3)
  1. LYRICA [Suspect]
     Active Substance: PREGABALIN
     Indication: Fibromyalgia
     Dosage: 75 MILLIGRAM, QD (ONE CAPSULE AT NIGHT)
     Route: 065
  2. LYRICA [Suspect]
     Active Substance: PREGABALIN
     Dosage: UNK, QOD
     Route: 065
  3. LYRICA [Suspect]
     Active Substance: PREGABALIN
     Dosage: 75 MILLIGRAM, BID
     Route: 065

REACTIONS (17)
  - Arrhythmia [Not Recovered/Not Resolved]
  - Hemiplegia [Not Recovered/Not Resolved]
  - Fibromyalgia [Unknown]
  - Overweight [Not Recovered/Not Resolved]
  - Insomnia [Unknown]
  - Nervousness [Unknown]
  - Pain [Unknown]
  - Psychiatric decompensation [Unknown]
  - Synovial cyst [Not Recovered/Not Resolved]
  - Arthritis [Not Recovered/Not Resolved]
  - Drug hypersensitivity [Not Recovered/Not Resolved]
  - Myalgia [Not Recovered/Not Resolved]
  - Underdose [Unknown]
  - Product storage error [Unknown]
  - Intentional product misuse [Unknown]
  - Product availability issue [Recovered/Resolved]
  - Product packaging quantity issue [Not Recovered/Not Resolved]

NARRATIVE: CASE EVENT DATE: 20230101
